FAERS Safety Report 11419509 (Version 1)
Quarter: 2015Q3

REPORT INFORMATION
  Report Type: Spontaneous
  Country: CN (occurrence: CN)
  Receive Date: 20150826
  Receipt Date: 20150826
  Transmission Date: 20151125
  Serious: Yes (Other)
  Sender: FDA-Public Use
  Company Number: CN-PFIZER INC-2015284158

PATIENT
  Age: 28 Year
  Sex: Female

DRUGS (5)
  1. PREDNISONE ACETATE [Suspect]
     Active Substance: PREDNISONE ACETATE
     Indication: NEOPLASM MALIGNANT
     Dosage: 100 MG, CYCLIC (ON DAY 1-5),
     Dates: start: 20141112
  2. VINCRISTINE SULFATE. [Suspect]
     Active Substance: VINCRISTINE SULFATE
     Indication: NEOPLASM MALIGNANT
     Dosage: 2 MG, CYCLIC
     Dates: start: 20141112
  3. ENDOXAN [Suspect]
     Active Substance: CYCLOPHOSPHAMIDE
     Indication: NEOPLASM MALIGNANT
     Dosage: 1.2 (UNKNOWN UNIT) CYCLIC
     Dates: start: 20141112
  4. RITUXIMAB [Suspect]
     Active Substance: RITUXIMAB
     Indication: NEOPLASM MALIGNANT
     Dosage: 600 MG, CYCLIC (ON DAY 0)
     Dates: start: 20141112
  5. PHARMORUBICIN [Suspect]
     Active Substance: EPIRUBICIN
     Indication: NEOPLASM MALIGNANT
     Dosage: 60 MG, CYCLIC (ON DAY 1-2)
     Dates: start: 20141112

REACTIONS (1)
  - Upper gastrointestinal haemorrhage [Unknown]
